FAERS Safety Report 6878769-6 (Version None)
Quarter: 2010Q3

REPORT INFORMATION
  Report Type: 
  Country: None (occurrence: None)
  Receive Date: 20100728
  Receipt Date: 20100716
  Transmission Date: 20110219
  Serious: Yes (Other)
  Sender: FDA-Public Use
  Company Number: US-PFIZER INC-2010011891

PATIENT
  Sex: Male
  Weight: 63 kg

DRUGS (4)
  1. CHANTIX [Suspect]
     Indication: SMOKING CESSATION THERAPY
     Dosage: 1 MG, 2X/DAY
     Dates: start: 20100108, end: 20100125
  2. VALIUM [Concomitant]
     Dosage: FREQUENCY: AS NEEDED,
  3. ALBUTEROL [Concomitant]
  4. SIMVASTATIN [Concomitant]
     Dosage: UNIT DOSE: 20;

REACTIONS (4)
  - HEART RATE INCREASED [None]
  - MYALGIA [None]
  - NEURALGIA [None]
  - RENAL PAIN [None]
